FAERS Safety Report 17980211 (Version 4)
Quarter: 2020Q3

REPORT INFORMATION
  Report Type: Report from Study
  Country: US (occurrence: US)
  Receive Date: 20200703
  Receipt Date: 20200930
  Transmission Date: 20201103
  Serious: No
  Sender: FDA-Public Use
  Company Number: NVSC2020US188473

PATIENT
  Age: 64 Year
  Sex: Male

DRUGS (1)
  1. ENTRESTO [Suspect]
     Active Substance: SACUBITRIL\VALSARTAN
     Indication: EJECTION FRACTION DECREASED
     Dosage: 97 MG, BID
     Route: 048

REACTIONS (4)
  - Oedema peripheral [Unknown]
  - Pain in extremity [Unknown]
  - Decreased activity [Unknown]
  - Ejection fraction decreased [Unknown]
